FAERS Safety Report 7244986-9 (Version None)
Quarter: 2011Q1

REPORT INFORMATION
  Report Type: 
  Country: None (occurrence: None)
  Receive Date: 20110126
  Receipt Date: 20110118
  Transmission Date: 20110831
  Serious: Yes (Hospitalization, Other)
  Sender: FDA-Public Use
  Company Number: US-TEVA-263889USA

PATIENT
  Sex: Female
  Weight: 47.3 kg

DRUGS (6)
  1. CISPLATIN [Suspect]
     Indication: HEAD AND NECK CANCER
     Route: 042
     Dates: start: 20101101, end: 20101220
  2. HEPARIN SODIUM [Concomitant]
     Indication: DEEP VEIN THROMBOSIS
  3. CETUXIMAB [Suspect]
     Dosage: DAY 15
     Route: 042
     Dates: start: 20101101, end: 20101220
  4. CETUXIMAB [Suspect]
     Dosage: DAY 8
     Route: 042
     Dates: start: 20101101, end: 20101220
  5. FLUOROURACIL [Suspect]
     Indication: HEAD AND NECK CANCER
     Route: 042
     Dates: start: 20101101, end: 20101220
  6. CETUXIMAB [Suspect]
     Indication: HEAD AND NECK CANCER
     Dosage: DAY 1
     Route: 042
     Dates: start: 20101101, end: 20101220

REACTIONS (1)
  - PNEUMATOSIS INTESTINALIS [None]
